FAERS Safety Report 4706635-0 (Version None)
Quarter: 2005Q3

REPORT INFORMATION
  Report Type: 
  Country: None (occurrence: None)
  Receive Date: 20050705
  Receipt Date: 20050624
  Transmission Date: 20060218
  Serious: Yes (Hospitalization)
  Sender: FDA-Public Use
  Company Number: CH-ROCHE-408913

PATIENT
  Age: 72 Year
  Sex: Female

DRUGS (9)
  1. TORSEMIDE [Suspect]
     Indication: DRUG USE FOR UNKNOWN INDICATION
     Route: 050
     Dates: end: 20050415
  2. DIGOXIN [Suspect]
     Indication: DRUG USE FOR UNKNOWN INDICATION
     Route: 048
     Dates: end: 20050415
  3. ENATEC [Suspect]
     Route: 048
     Dates: end: 20050415
  4. ENATEC [Suspect]
     Route: 048
  5. TEMESTA [Concomitant]
     Route: 048
  6. MOTILIUM [Concomitant]
     Route: 048
  7. SINTROM [Concomitant]
     Route: 048
  8. DILATREND [Concomitant]
     Route: 048
  9. UNSPECIFIED MEDICATION [Concomitant]
     Dosage: RECENTLY BUT BEFORE 11 APRIL 2005: FANS PATCHES (GENERIC UNKNOWN).
     Route: 062

REACTIONS (6)
  - DRUG TOXICITY [None]
  - ELECTROCARDIOGRAM ABNORMAL [None]
  - HYPERKALAEMIA [None]
  - OVERDOSE [None]
  - RENAL FAILURE CHRONIC [None]
  - THERAPEUTIC AGENT TOXICITY [None]
